FAERS Safety Report 25983170 (Version 1)
Quarter: 2025Q4

REPORT INFORMATION
  Report Type: Spontaneous
  Country: JP (occurrence: JP)
  Receive Date: 20251031
  Receipt Date: 20251031
  Transmission Date: 20260117
  Serious: Yes (Life-Threatening, Hospitalization)
  Sender: MACLEODS
  Company Number: JP-MACLEODS PHARMA-MAC2025055974

PATIENT

DRUGS (2)
  1. ACYCLOVIR [Suspect]
     Active Substance: ACYCLOVIR
     Indication: Herpes zoster
     Route: 065
  2. VALACYCLOVIR HYDROCHLORIDE [Suspect]
     Active Substance: VALACYCLOVIR HYDROCHLORIDE
     Indication: Herpes zoster
     Route: 065

REACTIONS (8)
  - Neurotoxicity [Recovered/Resolved]
  - Intentional self-injury [Unknown]
  - Shock haemorrhagic [Recovered/Resolved]
  - Abdominal injury [Recovered/Resolved]
  - Gastrointestinal injury [Recovered/Resolved]
  - Anaemia [Recovered/Resolved]
  - Lactic acidosis [Recovered/Resolved]
  - Medication error [Unknown]
